FAERS Safety Report 10047765 (Version 2)
Quarter: 2014Q1

REPORT INFORMATION
  Report Type: Spontaneous
  Country: US (occurrence: US)
  Receive Date: 20140331
  Receipt Date: 20140331
  Transmission Date: 20141002
  Serious: Yes (Other)
  Sender: FDA-Public Use
  Company Number: US-GE HEALTHCARE MEDICAL DIAGNOSTICS-OSCN-PR-1105S-0134

PATIENT
  Age: 40 Year
  Sex: Female

DRUGS (8)
  1. OMNISCAN [Suspect]
     Indication: HEADACHE
     Route: 042
     Dates: start: 20060508, end: 20060508
  2. OMNISCAN [Suspect]
     Indication: DIZZINESS
     Route: 042
     Dates: start: 20061101, end: 20061101
  3. OMNISCAN [Suspect]
     Indication: HYPERPROLACTINAEMIA
  4. MAGNEVIST [Suspect]
     Indication: ASTHENIA
     Route: 042
     Dates: start: 20000724, end: 20000724
  5. MAGNEVIST [Suspect]
     Indication: HEADACHE
     Route: 042
     Dates: start: 20060508, end: 20060508
  6. MAGNEVIST [Suspect]
     Indication: DIZZINESS
     Route: 042
     Dates: start: 20061101, end: 20061101
  7. MAGNEVIST [Suspect]
     Indication: HYPERPROLACTINAEMIA
  8. MAGNEVIST [Suspect]
     Indication: TRANSIENT ISCHAEMIC ATTACK

REACTIONS (1)
  - Nephrogenic systemic fibrosis [Not Recovered/Not Resolved]
